FAERS Safety Report 7528130-6 (Version None)
Quarter: 2011Q2

REPORT INFORMATION
  Report Type: 
  Country: None (occurrence: None)
  Receive Date: 20110607
  Receipt Date: 20100706
  Transmission Date: 20111010
  Serious: No
  Sender: FDA-Public Use
  Company Number: US-ASTRAZENECA-2010SE31460

PATIENT
  Age: 68 Year
  Sex: Female
  Weight: 63.5 kg

DRUGS (9)
  1. PRILOSEC [Suspect]
     Indication: GASTROOESOPHAGEAL REFLUX DISEASE
     Route: 048
     Dates: start: 20050101
  2. RED RICE YEAST SUPPLEMENT [Interacting]
     Route: 065
  3. CALCIUM CARBONATE [Concomitant]
  4. ZANTAC [Concomitant]
  5. MAGNESIUM SULFATE [Concomitant]
  6. VITAMIN E [Concomitant]
  7. MIDRIN [Concomitant]
     Indication: MIGRAINE
  8. VITAMIN D [Concomitant]
  9. LORAZEPAM [Concomitant]
     Indication: SLEEP DISORDER

REACTIONS (5)
  - DRUG DOSE OMISSION [None]
  - MUSCLE SPASMS [None]
  - MIGRAINE [None]
  - HYPERCHOLESTEROLAEMIA [None]
  - DRUG INTERACTION [None]
